FAERS Safety Report 17149412 (Version 2)
Quarter: 2019Q4

REPORT INFORMATION
  Report Type: Spontaneous
  Country: FR (occurrence: FR)
  Receive Date: 20191213
  Receipt Date: 20191217
  Transmission Date: 20200122
  Serious: Yes (Other)
  Sender: FDA-Public Use
  Company Number: FR-PFIZER INC-2019536535

PATIENT
  Age: 85 Year
  Sex: Male
  Weight: 65 kg

DRUGS (4)
  1. CONTRAMAL [Interacting]
     Active Substance: TRAMADOL HYDROCHLORIDE
     Indication: PAIN
     Dosage: 37.5 MG, 1X/DAY
     Route: 048
     Dates: start: 201908, end: 20191112
  2. EUPANTOL [Suspect]
     Active Substance: PANTOPRAZOLE SODIUM
     Indication: GASTRIC ULCER
     Dosage: 40 MG, 1X/DAY
     Route: 048
     Dates: start: 20191104, end: 20191113
  3. LOVENOX [Interacting]
     Active Substance: ENOXAPARIN SODIUM
     Indication: THROMBOSIS PROPHYLAXIS
     Dosage: 4000 IU, 1X/DAY
     Route: 058
     Dates: start: 20191101, end: 20191112
  4. TRIFLUCAN [Interacting]
     Active Substance: FLUCONAZOLE
     Indication: OESOPHAGEAL CANDIDIASIS
     Dosage: 100 MG, 1X/DAY
     Route: 048
     Dates: start: 20191107, end: 20191111

REACTIONS (2)
  - Hepatitis [Not Recovered/Not Resolved]
  - Drug interaction [Unknown]

NARRATIVE: CASE EVENT DATE: 20191112
